FAERS Safety Report 8822497 (Version 2)
Quarter: 2012Q4

REPORT INFORMATION
  Report Type: 
  Country: NO (occurrence: NO)
  Receive Date: 20121003
  Receipt Date: 20121224
  Transmission Date: 20130627
  Serious: Yes (Other)
  Sender: FDA-Public Use
  Company Number: NO-RANBAXY-2012R1-60489

PATIENT
  Age: 62 Year
  Sex: Male

DRUGS (12)
  1. SIMVASTATIN [Suspect]
     Indication: HYPERTENSION
     Dosage: UNK
     Route: 065
     Dates: start: 20080821, end: 201205
  2. SIMVASTATIN [Suspect]
     Indication: CEREBROVASCULAR ACCIDENT
  3. SIMVASTATIN [Suspect]
     Indication: TYPE 2 DIABETES MELLITUS
  4. METFORMIN HYDROCHLORIDE [Concomitant]
     Indication: PRODUCT USED FOR UNKNOWN INDICATION
     Dosage: UNK
     Route: 065
  5. ALBYL-E [Concomitant]
     Indication: PRODUCT USED FOR UNKNOWN INDICATION
     Dosage: Unknown
     Route: 065
     Dates: start: 20031204
  6. AERIUS [Concomitant]
     Indication: HYPERSENSITIVITY
     Route: 065
  7. AERIUS [Concomitant]
     Dosage: Unknown
     Route: 065
  8. CARVEDILOL [Concomitant]
     Indication: PRODUCT USED FOR UNKNOWN INDICATION
     Dosage: 25 mg, 2 DF in the morning and 2 DF in the evening
     Route: 065
     Dates: start: 20081002
  9. FELODIPINE HEXAL [Concomitant]
     Indication: PRODUCT USED FOR UNKNOWN INDICATION
     Dosage: UNK
     Route: 065
     Dates: start: 20010215
  10. FAMOTIDINE [Concomitant]
     Indication: PRODUCT USED FOR UNKNOWN INDICATION
     Dosage: UNK
     Route: 065
     Dates: start: 20081016
  11. METFORMIN [Concomitant]
     Indication: PRODUCT USED FOR UNKNOWN INDICATION
     Route: 065
  12. FELODIPINE [Concomitant]
     Indication: PRODUCT USED FOR UNKNOWN INDICATION
     Route: 065
     Dates: start: 20010215

REACTIONS (5)
  - Urinary bladder haemorrhage [Unknown]
  - Chromaturia [Unknown]
  - Blood urine present [Unknown]
  - Myositis [Unknown]
  - Urinary bladder haemorrhage [Unknown]
